FAERS Safety Report 23990166 (Version 1)
Quarter: 2024Q2

REPORT INFORMATION
  Report Type: Spontaneous
  Country: US (occurrence: US)
  Receive Date: 20240619
  Receipt Date: 20240619
  Transmission Date: 20240715
  Serious: Yes (Hospitalization)
  Sender: FDA-Public Use
  Company Number: US-002147023-NVSC2024US127229

PATIENT
  Sex: Female

DRUGS (1)
  1. PROMACTA [Suspect]
     Active Substance: ELTROMBOPAG OLAMINE
     Indication: Illness
     Dosage: 50 MG, QD
     Route: 048
     Dates: start: 202406

REACTIONS (2)
  - Pruritus [Unknown]
  - Product use in unapproved indication [Unknown]
